FAERS Safety Report 24406346 (Version 3)
Quarter: 2024Q4

REPORT INFORMATION
  Report Type: Spontaneous
  Country: CZ (occurrence: CZ)
  Receive Date: 20241007
  Receipt Date: 20241112
  Transmission Date: 20250115
  Serious: Yes (Life-Threatening, Other)
  Sender: NOVARTIS
  Company Number: CZ-BAUSCH-BL-2023-017048

PATIENT
  Age: 63 Year
  Sex: Male

DRUGS (7)
  1. CYCLOSPORINE [Suspect]
     Active Substance: CYCLOSPORINE
     Indication: Myasthenia gravis
     Dosage: UNK
     Route: 065
  2. CYCLOSPORINE [Suspect]
     Active Substance: CYCLOSPORINE
     Indication: Immunosuppression
  3. MYCOPHENOLATE MOFETIL [Suspect]
     Active Substance: MYCOPHENOLATE MOFETIL
     Indication: Immunosuppression
     Dosage: UNK
     Route: 065
  4. MYCOPHENOLATE MOFETIL [Suspect]
     Active Substance: MYCOPHENOLATE MOFETIL
     Indication: Myasthenia gravis
  5. AZATHIOPRINE [Suspect]
     Active Substance: AZATHIOPRINE
     Indication: Immunosuppression
     Dosage: UNK
     Route: 065
  6. AZATHIOPRINE [Suspect]
     Active Substance: AZATHIOPRINE
     Indication: Myasthenia gravis
  7. CARBOPLATIN [Suspect]
     Active Substance: CARBOPLATIN
     Indication: Immunosuppression
     Dosage: UNK
     Route: 065

REACTIONS (2)
  - Therapy non-responder [Unknown]
  - Therapy partial responder [Unknown]
